FAERS Safety Report 5281750-4 (Version None)
Quarter: 2007Q1

REPORT INFORMATION
  Report Type: 
  Country: None (occurrence: None)
  Receive Date: 20070330
  Receipt Date: 20070322
  Transmission Date: 20070707
  Serious: Yes (Other)
  Sender: FDA-Public Use
  Company Number: 2007JP000914

PATIENT
  Age: 48 Year
  Sex: Female
  Weight: 60 kg

DRUGS (12)
  1. CEFAMEZIN [Suspect]
     Route: 042
     Dates: start: 20051005, end: 20051005
  2. ANESTHESIA [Concomitant]
     Route: 065
  3. FOSFOMYCIN [Concomitant]
     Route: 065
  4. DORMICUM [Concomitant]
     Route: 030
     Dates: start: 20051005, end: 20051005
  5. VEEN-D [Concomitant]
     Route: 042
     Dates: start: 20051005, end: 20051005
  6. SOLITA-T3 [Concomitant]
     Route: 065
     Dates: start: 20051005, end: 20051006
  7. GASTER [Concomitant]
     Route: 042
     Dates: start: 20051005, end: 20051005
  8. VEEN F [Concomitant]
     Route: 065
     Dates: start: 20051005, end: 20051005
  9. MARCAINE [Concomitant]
     Route: 065
     Dates: start: 20051005, end: 20051005
  10. MORPHINE [Concomitant]
     Route: 042
     Dates: start: 20051005, end: 20051005
  11. SALINE [Concomitant]
     Route: 042
     Dates: start: 20051005, end: 20051005
  12. CEFMETAZON [Concomitant]
     Route: 042
     Dates: start: 20051005

REACTIONS (5)
  - ANAPHYLACTIC REACTION [None]
  - EYELID OEDEMA [None]
  - HOT FLUSH [None]
  - LIP OEDEMA [None]
  - URTICARIA [None]
